FAERS Safety Report 4781617-1 (Version None)
Quarter: 2005Q3

REPORT INFORMATION
  Report Type: 
  Country: None (occurrence: None)
  Receive Date: 20050928
  Receipt Date: 20030813
  Transmission Date: 20060218
  Serious: Yes (Other)
  Sender: FDA-Public Use
  Company Number: US-AMGEN-US045009

PATIENT
  Sex: Female

DRUGS (7)
  1. ENBREL [Suspect]
     Indication: RHEUMATOID ARTHRITIS
     Route: 058
     Dates: start: 20030309
  2. CELEBREX [Concomitant]
     Dates: start: 20000101
  3. PREDNISONE [Concomitant]
     Dates: start: 20000101
  4. DIOVAN [Concomitant]
  5. COLESTID [Concomitant]
     Dates: start: 20010101
  6. PRILOSEC [Concomitant]
  7. MINOCYCLINE [Concomitant]
     Dates: start: 20030701

REACTIONS (2)
  - ANAEMIA [None]
  - LEUKOCYTOCLASTIC VASCULITIS [None]
